FAERS Safety Report 4597556-5 (Version None)
Quarter: 2005Q1

REPORT INFORMATION
  Report Type: 
  Country: None (occurrence: None)
  Receive Date: 20050228
  Receipt Date: 20050228
  Transmission Date: 20050727
  Serious: Yes (Hospitalization)
  Sender: FDA-Public Use
  Company Number: None

PATIENT
  Sex: Male
  Weight: 86.1834 kg

DRUGS (16)
  1. IRESSA [Suspect]
     Indication: HYPOPHARYNGEAL CANCER
     Dosage: 250 MG QD PO
     Route: 048
     Dates: start: 20050103, end: 20050222
  2. CISPLATIN [Suspect]
     Indication: HYPOPHARYNGEAL CANCER
     Dosage: 60 MG/M2  Q 3 WEEKS IV
     Route: 042
     Dates: start: 20050103, end: 20050214
  3. LIPITOR [Concomitant]
  4. TOPROL-XL [Concomitant]
  5. PLAVIX [Concomitant]
  6. ASPIRIN [Concomitant]
  7. NEXIUM [Concomitant]
  8. DEXAMETHASONE [Concomitant]
  9. SALAGEN [Concomitant]
  10. FLUCONAZOLE [Concomitant]
  11. LORAZEPAM [Concomitant]
  12. ZOFRAN [Concomitant]
  13. KYTRIL [Concomitant]
  14. THERA-FLU [Concomitant]
  15. BENADRYL [Concomitant]
  16. SENNA [Concomitant]

REACTIONS (3)
  - DYSPNOEA [None]
  - FEBRILE NEUTROPENIA [None]
  - INCREASED UPPER AIRWAY SECRETION [None]
